FAERS Safety Report 6620404-6 (Version None)
Quarter: 2010Q1

REPORT INFORMATION
  Report Type: 
  Country: None (occurrence: None)
  Receive Date: 20100304
  Receipt Date: 20100216
  Transmission Date: 20100710
  Serious: Yes (Hospitalization)
  Sender: FDA-Public Use
  Company Number: KV20100070

PATIENT
  Age: 52 Year
  Sex: Female

DRUGS (11)
  1. MORPHINE SULFATE [Suspect]
     Indication: PAIN
     Dosage: ORAL
     Route: 048
     Dates: start: 20080104
  2. HYDROMORPHONE HCL [Concomitant]
  3. LEXAPRO [Concomitant]
  4. ISOSORBIDE (ISOSORBIDE) [Concomitant]
  5. PLAVIX [Concomitant]
  6. LISINOPRIL [Concomitant]
  7. HYDROCHLOROTHIAZIDE [Concomitant]
  8. OXYBUTYNIN CHLORIDE [Concomitant]
  9. FOSAMAX [Concomitant]
  10. HYDROCODONE W/APAP (HYDROCODONE, PARACETAMOL) [Concomitant]
  11. METOPROLOL TARTRATE [Concomitant]

REACTIONS (14)
  - AMNESIA [None]
  - ANXIETY [None]
  - ASTHENIA [None]
  - BRADYCARDIA [None]
  - DISORIENTATION [None]
  - DIZZINESS [None]
  - DRUG TOXICITY [None]
  - HYPOTENSION [None]
  - OVERDOSE [None]
  - PRODUCT COLOUR ISSUE [None]
  - PRODUCT SIZE ISSUE [None]
  - RESPIRATORY FAILURE [None]
  - SYNCOPE [None]
  - URINARY TRACT INFECTION [None]
